FAERS Safety Report 17773872 (Version 1)
Quarter: 2020Q2

REPORT INFORMATION
  Report Type: Spontaneous
  Country: US (occurrence: US)
  Receive Date: 20200513
  Receipt Date: 20200513
  Transmission Date: 20200714
  Serious: Yes (Hospitalization, Other)
  Sender: FDA-Public Use
  Company Number: US-MICRO LABS LIMITED-ML2020-01488

PATIENT
  Age: 58 Year
  Sex: Male

DRUGS (2)
  1. VERAPAMIL HYDROCHLORIDE. [Suspect]
     Active Substance: VERAPAMIL HYDROCHLORIDE
     Indication: CEREBRAL VASOCONSTRICTION
     Route: 013
  2. NICARDIPINE [Suspect]
     Active Substance: NICARDIPINE
     Indication: CEREBRAL VASOCONSTRICTION
     Route: 042

REACTIONS (1)
  - Drug ineffective [Unknown]
